FAERS Safety Report 7399819-7 (Version None)
Quarter: 2011Q2

REPORT INFORMATION
  Report Type: 
  Country: None (occurrence: None)
  Receive Date: 20110407
  Receipt Date: 20110323
  Transmission Date: 20111010
  Serious: No
  Sender: FDA-Public Use
  Company Number: US-JNJFOC-20110311014

PATIENT
  Sex: Male
  Weight: 113.4 kg

DRUGS (2)
  1. FENTANYL-100 [Suspect]
     Dosage: NDC# 0781-7244-55
     Route: 062
  2. FENTANYL-100 [Suspect]
     Indication: BACK PAIN
     Dosage: NDC# 0781-7242-55
     Route: 062

REACTIONS (6)
  - DRUG INEFFECTIVE [None]
  - PRODUCT ADHESION ISSUE [None]
  - LETHARGY [None]
  - WRONG TECHNIQUE IN DRUG USAGE PROCESS [None]
  - FEELING ABNORMAL [None]
  - WITHDRAWAL SYNDROME [None]
